FAERS Safety Report 5885155-4 (Version None)
Quarter: 2008Q3

REPORT INFORMATION
  Report Type: 
  Country: None (occurrence: None)
  Receive Date: 20080916
  Receipt Date: 20080908
  Transmission Date: 20090109
  Serious: Yes (Death)
  Sender: FDA-Public Use
  Company Number: US-GILEAD-2008-0018036

PATIENT
  Sex: Female

DRUGS (10)
  1. LETAIRIS [Suspect]
     Indication: PULMONARY ARTERIAL HYPERTENSION
     Route: 048
     Dates: start: 20070828
  2. REVATIO [Concomitant]
     Route: 048
  3. SPIRONOLACTONE [Concomitant]
     Route: 048
  4. FUROSEMIDE [Concomitant]
     Route: 048
  5. LEVOTHROID [Concomitant]
     Route: 048
  6. FLUOXETINE [Concomitant]
     Route: 048
  7. SULFATRIM [Concomitant]
     Dosage: 400/80MG
     Route: 048
  8. AMITRIPTYLINE HCL [Concomitant]
     Route: 048
  9. TYLENOL W/ CODEINE [Concomitant]
     Route: 048
  10. TYLENOL (CAPLET) [Concomitant]
     Route: 048

REACTIONS (1)
  - DEATH [None]
